FAERS Safety Report 8265209-8 (Version None)
Quarter: 2012Q2

REPORT INFORMATION
  Report Type: 
  Country: None (occurrence: None)
  Receive Date: 20120406
  Receipt Date: 20120330
  Transmission Date: 20120825
  Serious: Yes (Other)
  Sender: FDA-Public Use
  Company Number: CN-ROCHE-1054925

PATIENT
  Age: 60 Year
  Sex: Female

DRUGS (1)
  1. XELODA [Suspect]
     Indication: ADENOCARCINOMA
     Route: 048

REACTIONS (3)
  - APHAGIA [None]
  - HAEMATURIA [None]
  - ASCITES [None]
